FAERS Safety Report 12956339 (Version 1)
Quarter: 2016Q4

REPORT INFORMATION
  Report Type: Spontaneous
  Country: RU (occurrence: RU)
  Receive Date: 20161118
  Receipt Date: 20161118
  Transmission Date: 20170207
  Serious: Yes (Other)
  Sender: FDA-Public Use
  Company Number: RU-ASTRAZENECA-2016SF21569

PATIENT
  Age: 67 Year
  Sex: Female
  Weight: 85 kg

DRUGS (7)
  1. THROMBO ASS [Concomitant]
     Active Substance: ASPIRIN
  2. NOFLUX [Concomitant]
  3. AMINOCAPROIC ACID. [Concomitant]
     Active Substance: AMINOCAPROIC ACID
  4. BRILINTA [Suspect]
     Active Substance: TICAGRELOR
     Indication: MYOCARDIAL INFARCTION
     Route: 048
     Dates: start: 201601
  5. EGILOK [Concomitant]
     Active Substance: METOPROLOL TARTRATE
  6. ENAP H [Concomitant]
  7. PHEZAM [Concomitant]

REACTIONS (3)
  - Lower limb fracture [Recovered/Resolved]
  - Gastric ulcer haemorrhage [Recovered/Resolved]
  - Dizziness [Recovering/Resolving]

NARRATIVE: CASE EVENT DATE: 201601
